FAERS Safety Report 7608519-7 (Version None)
Quarter: 2011Q3

REPORT INFORMATION
  Report Type: 
  Country: None (occurrence: None)
  Receive Date: 20110714
  Receipt Date: 20110712
  Transmission Date: 20111222
  Serious: No
  Sender: FDA-Public Use
  Company Number: US-TEVA-288215USA

PATIENT
  Sex: Female

DRUGS (10)
  1. PANTOPRAZOLE [Concomitant]
  2. COPAXONE [Suspect]
     Indication: MULTIPLE SCLEROSIS
     Route: 058
     Dates: start: 20110308
  3. ZOLPIDEM TARTRATE [Concomitant]
  4. GUAIFENESIN [Concomitant]
  5. NORMENSAL [Concomitant]
  6. EPINEPHRINE [Concomitant]
  7. NAPROXEN [Concomitant]
  8. SERETIDE                           /01420901/ [Concomitant]
  9. ALBUTEROL [Concomitant]
  10. CETIRIZINE HYDROCHLORIDE [Concomitant]

REACTIONS (1)
  - AMENORRHOEA [None]
